FAERS Safety Report 24184380 (Version 6)
Quarter: 2025Q3

REPORT INFORMATION
  Report Type: Spontaneous
  Country: US (occurrence: US)
  Receive Date: 20240807
  Receipt Date: 20250930
  Transmission Date: 20251020
  Serious: Yes (Hospitalization, Other)
  Sender: SANOFI AVENTIS
  Company Number: US-SA-SAC20240710001011

PATIENT
  Age: 55 Year
  Sex: Male

DRUGS (5)
  1. DUPIXENT [Suspect]
     Active Substance: DUPILUMAB
     Indication: Asthma
     Route: 058
     Dates: start: 202405, end: 202405
  2. DUPIXENT [Suspect]
     Active Substance: DUPILUMAB
     Dosage: 300 MG, QOW
     Route: 058
     Dates: start: 2024, end: 202407
  3. DUPIXENT [Suspect]
     Active Substance: DUPILUMAB
     Dosage: 300 MG, QOW
     Route: 058
     Dates: start: 2024, end: 2024
  4. DUPIXENT [Suspect]
     Active Substance: DUPILUMAB
     Dosage: 300 MG, Q12D
     Route: 058
     Dates: start: 2024
  5. DUPIXENT [Suspect]
     Active Substance: DUPILUMAB
     Dosage: 300 MG, QOW
     Route: 058
     Dates: start: 2024

REACTIONS (33)
  - Cerebrovascular accident [Recovering/Resolving]
  - Blindness unilateral [Not Recovered/Not Resolved]
  - Carotid artery occlusion [Not Recovered/Not Resolved]
  - Hemiplegia [Recovered/Resolved]
  - Respiratory disorder [Unknown]
  - Dyspnoea [Unknown]
  - Drug interaction [Unknown]
  - Chronic obstructive pulmonary disease [Unknown]
  - Lower respiratory tract infection [Not Recovered/Not Resolved]
  - Wheezing [Not Recovered/Not Resolved]
  - Pyrexia [Not Recovered/Not Resolved]
  - Lumbar vertebral fracture [Unknown]
  - Shoulder arthroplasty [Unknown]
  - Asthma [Unknown]
  - Pulmonary oedema [Unknown]
  - Pulmonary mass [Unknown]
  - Heart valve stenosis [Unknown]
  - Fluid retention [Unknown]
  - Weight increased [Unknown]
  - Oropharyngeal discolouration [Unknown]
  - Sleep apnoea syndrome [Unknown]
  - Tongue disorder [Recovered/Resolved]
  - Flank pain [Unknown]
  - Shoulder fracture [Unknown]
  - Influenza [Unknown]
  - Insomnia [Unknown]
  - Rash [Unknown]
  - Chest discomfort [Unknown]
  - Psoriasis [Not Recovered/Not Resolved]
  - Contusion [Unknown]
  - Sinusitis [Unknown]
  - Oropharyngeal pain [Unknown]
  - Inappropriate schedule of product administration [Unknown]

NARRATIVE: CASE EVENT DATE: 20240101
